FAERS Safety Report 24027778 (Version 1)
Quarter: 2024Q2

REPORT INFORMATION
  Report Type: Report from Study
  Country: RU (occurrence: RU)
  Receive Date: 20240628
  Receipt Date: 20240628
  Transmission Date: 20240716
  Serious: Yes (Other)
  Sender: FDA-Public Use
  Company Number: RU-BRAINTREE LABORATORIES, INC.-2024BTE00377

PATIENT
  Age: 72 Year
  Sex: Male

DRUGS (1)
  1. MAGNESIUM SULFATE\POTASSIUM SULFATE\SODIUM SULFATE [Suspect]
     Active Substance: MAGNESIUM SULFATE\POTASSIUM SULFATE\SODIUM SULFATE
     Indication: Product used for unknown indication
     Dosage: UNSPECIFIED POSOLOGY
     Dates: start: 20240605

REACTIONS (4)
  - Nephrolithiasis [Unknown]
  - Renal cyst [Unknown]
  - Pain [Unknown]
  - Dysuria [Unknown]

NARRATIVE: CASE EVENT DATE: 20240605
